FAERS Safety Report 23280179 (Version 1)
Quarter: 2023Q4

REPORT INFORMATION
  Report Type: Report from Study
  Country: GB (occurrence: GB)
  Receive Date: 20231210
  Receipt Date: 20231210
  Transmission Date: 20240110
  Serious: Yes (Other)
  Sender: FDA-Public Use
  Company Number: GB-002147023-NVSC2023GB061984

PATIENT
  Age: 77 Year
  Sex: Male

DRUGS (6)
  1. SANDOSTATIN LAR DEPOT [Suspect]
     Active Substance: OCTREOTIDE ACETATE
     Indication: Hypoglycaemia
     Dosage: 30 MG, Q3W, (EVERY 21 DAYS)
     Route: 030
  2. SANDOSTATIN LAR DEPOT [Suspect]
     Active Substance: OCTREOTIDE ACETATE
     Indication: Gastroenteropancreatic neuroendocrine tumour disease
     Dosage: 30 MG, QMO
     Route: 030
     Dates: start: 20200201
  3. SANDOSTATIN LAR DEPOT [Suspect]
     Active Substance: OCTREOTIDE ACETATE
     Dosage: UNK, Q3W, (EVERY 21 DAYS)
     Route: 065
  4. SANDOSTATIN LAR DEPOT [Suspect]
     Active Substance: OCTREOTIDE ACETATE
     Dosage: 30 MG, Q3W, (EVERY 21 DAYS)
     Route: 030
  5. SANDOSTATIN LAR DEPOT [Suspect]
     Active Substance: OCTREOTIDE ACETATE
     Dosage: 30 MG, Q3W
     Route: 030
  6. SANDOSTATIN LAR DEPOT [Suspect]
     Active Substance: OCTREOTIDE ACETATE
     Dosage: UNK
     Route: 030
     Dates: start: 202303

REACTIONS (8)
  - Lower respiratory tract infection [Unknown]
  - Pneumonia [Unknown]
  - Feeling cold [Unknown]
  - Nasopharyngitis [Unknown]
  - Chills [Unknown]
  - Cystitis [Unknown]
  - Blood glucose decreased [Recovered/Resolved]
  - Inappropriate schedule of product administration [Unknown]
